FAERS Safety Report 6015914-9 (Version None)
Quarter: 2008Q4

REPORT INFORMATION
  Report Type: 
  Country: None (occurrence: None)
  Receive Date: 20081222
  Receipt Date: 20081218
  Transmission Date: 20090506
  Serious: Yes (Other)
  Sender: FDA-Public Use
  Company Number: D0058501A

PATIENT
  Sex: Female

DRUGS (2)
  1. ATMADISC [Suspect]
     Dosage: 550MCG UNKNOWN
     Route: 055
     Dates: start: 20020101
  2. ATMADISC [Suspect]
     Dosage: 300MCG UNKNOWN
     Route: 055

REACTIONS (3)
  - ALOPECIA [None]
  - DERMATITIS [None]
  - PSORIASIS [None]
